FAERS Safety Report 19583805 (Version 1)
Quarter: 2021Q3

REPORT INFORMATION
  Report Type: Spontaneous
  Country: US (occurrence: US)
  Receive Date: 20210720
  Receipt Date: 20210720
  Transmission Date: 20211014
  Serious: Yes (Death)
  Sender: FDA-Public Use
  Company Number: US-ADAMAS_PHARMACEUTICALS-USA-POI1235202100073

PATIENT
  Age: 70 Year
  Sex: Male

DRUGS (2)
  1. OSMOLEX ER [Suspect]
     Active Substance: AMANTADINE
  2. OSMOLEX ER [Suspect]
     Active Substance: AMANTADINE
     Indication: EXTRAPYRAMIDAL DISORDER
     Dates: start: 2021

REACTIONS (1)
  - Death [Fatal]

NARRATIVE: CASE EVENT DATE: 20210706
